FAERS Safety Report 4463381-9 (Version None)
Quarter: 2004Q3

REPORT INFORMATION
  Report Type: 
  Country: None (occurrence: None)
  Receive Date: 20040928
  Receipt Date: 20040916
  Transmission Date: 20050211
  Serious: Yes (Other)
  Sender: FDA-Public Use
  Company Number: A0525990A

PATIENT
  Age: 5 Year
  Sex: Male

DRUGS (4)
  1. FLOVENT [Suspect]
     Indication: ASTHMA
     Dosage: 2 PUFF(S)/TWICE PER DAY/IN INHALED
     Route: 055
     Dates: start: 20040501, end: 20040701
  2. CETIRIZINE HCL [Concomitant]
  3. MOMETASONE FUROATE [Concomitant]
  4. SALBUTAMOL SULPHATE [Concomitant]

REACTIONS (7)
  - ANXIETY [None]
  - CRYING [None]
  - DEPRESSION [None]
  - FEAR [None]
  - HALLUCINATION [None]
  - IRRITABILITY [None]
  - PSYCHIATRIC SYMPTOM [None]
